FAERS Safety Report 8203469-X (Version None)
Quarter: 2012Q1

REPORT INFORMATION
  Report Type: 
  Country: None (occurrence: None)
  Receive Date: 20120313
  Receipt Date: 20120307
  Transmission Date: 20120608
  Serious: Yes (Other)
  Sender: FDA-Public Use
  Company Number: US-BIOGENIDEC-2012BI004948

PATIENT
  Age: 47 Year
  Sex: Female

DRUGS (9)
  1. CHOLECALCIFEROL [Concomitant]
     Route: 048
  2. ERGOCALCIFEROL [Concomitant]
     Route: 048
  3. PREGABALIN [Concomitant]
     Route: 048
  4. SERTRALINE HYDROCHLORIDE [Concomitant]
     Route: 048
  5. TYSABRI [Suspect]
     Indication: MULTIPLE SCLEROSIS
     Route: 042
     Dates: start: 20111216
  6. GABAPENTIN [Concomitant]
     Route: 048
  7. BACLOFEN [Concomitant]
     Route: 048
  8. MAGNESIUM [Concomitant]
     Route: 048
  9. VITAMIN B COMPLEX CAP [Concomitant]
     Route: 048

REACTIONS (1)
  - MENINGIOMA [None]
